FAERS Safety Report 6263745-7 (Version None)
Quarter: 2009Q3

REPORT INFORMATION
  Report Type: 
  Country: None (occurrence: None)
  Receive Date: 20090710
  Receipt Date: 20090701
  Transmission Date: 20100115
  Serious: Yes (Hospitalization, Other)
  Sender: FDA-Public Use
  Company Number: PHHY2008JP22033

PATIENT
  Sex: Female
  Weight: 44 kg

DRUGS (8)
  1. ZOMETA [Suspect]
     Indication: METASTASES TO BONE
     Dosage: 4 MG, QMO
     Route: 042
     Dates: start: 20060529, end: 20070818
  2. AREDIA [Suspect]
     Indication: METASTASES TO BONE
     Dosage: 90 MG, ONCE/SINGLE
     Route: 042
     Dates: start: 20060501, end: 20060501
  3. FARMORUBICIN [Concomitant]
     Indication: BREAST CANCER
     Dosage: 110 MG, UNK
     Route: 042
     Dates: start: 20060627, end: 20070514
  4. ENDOXAN [Concomitant]
     Indication: BREAST CANCER
     Dosage: 800 MG, UNK
     Route: 042
     Dates: start: 20060627, end: 20070514
  5. FLUOROURACIL [Concomitant]
     Indication: BREAST CANCER
     Dosage: 750 MG, UNK
     Route: 042
     Dates: start: 20060627, end: 20070514
  6. TAXOL [Concomitant]
     Indication: BREAST CANCER
     Dosage: 117 MG, UNK
     Route: 042
     Dates: start: 20070604, end: 20070714
  7. TAXOTERE [Concomitant]
     Indication: BREAST CANCER
     Dosage: 80 MG, UNK
     Route: 042
     Dates: start: 20080218
  8. TAXOTERE [Concomitant]
     Dosage: 60 MG, UNK
     Route: 042
     Dates: end: 20080825

REACTIONS (6)
  - BONE DISORDER [None]
  - GINGIVAL CANCER [None]
  - JAW LESION EXCISION [None]
  - OSTEOMYELITIS [None]
  - OSTEONECROSIS [None]
  - PAIN IN JAW [None]
